FAERS Safety Report 11357308 (Version 1)
Quarter: 2015Q3

REPORT INFORMATION
  Report Type: Spontaneous
  Country: US (occurrence: US)
  Receive Date: 20150803
  Receipt Date: 20150803
  Transmission Date: 20151125
  Serious: No
  Sender: FDA-Public Use
  Company Number: US-ELI_LILLY_AND_COMPANY-US201312004867

PATIENT
  Sex: Male

DRUGS (2)
  1. STRATTERA [Suspect]
     Active Substance: ATOMOXETINE HYDROCHLORIDE
     Indication: ATTENTION DEFICIT/HYPERACTIVITY DISORDER
     Dosage: 25 MG, QD
     Route: 065
     Dates: start: 201310, end: 20131208
  2. STRATTERA [Suspect]
     Active Substance: ATOMOXETINE HYDROCHLORIDE
     Dosage: 10 MG, QD
     Route: 065
     Dates: start: 201310, end: 20131208

REACTIONS (6)
  - Mood altered [Unknown]
  - Emotional disorder [Unknown]
  - Drug withdrawal syndrome [Unknown]
  - Psychomotor hyperactivity [Unknown]
  - Drug hypersensitivity [Recovered/Resolved]
  - Mania [Unknown]
